FAERS Safety Report 4322127-5 (Version None)
Quarter: 2004Q1

REPORT INFORMATION
  Report Type: 
  Country: None (occurrence: None)
  Receive Date: 20040319
  Receipt Date: 20040308
  Transmission Date: 20041129
  Serious: Yes (Hospitalization)
  Sender: FDA-Public Use
  Company Number: US-JNJFOC-20040302629

PATIENT
  Age: 27 Year
  Sex: Female

DRUGS (3)
  1. ORTHO EVRA [Suspect]
     Indication: CONTRACEPTION
     Dosage: 3 IN 4 WEEK, TRANSDERMAL
     Route: 062
     Dates: start: 20040229
  2. TYLENOL [Concomitant]
  3. PRE NATAL VITAMINS (PRENATAL VITAMINS [Concomitant]

REACTIONS (3)
  - BACK PAIN [None]
  - DIZZINESS [None]
  - HEADACHE [None]
